FAERS Safety Report 21620541 (Version 1)
Quarter: 2022Q4

REPORT INFORMATION
  Report Type: Spontaneous
  Country: US (occurrence: None)
  Receive Date: 20221121
  Receipt Date: 20221121
  Transmission Date: 20230113
  Serious: No
  Sender: FDA-Public Use
  Company Number: 2022A355490

PATIENT
  Age: 850 Month
  Sex: Male
  Weight: 65.8 kg

DRUGS (2)
  1. SYMBICORT [Suspect]
     Active Substance: BUDESONIDE\FORMOTEROL FUMARATE DIHYDRATE
     Indication: Asthma
     Dosage: TWO PUFFS, TWO TIMES A DAY
     Route: 055
     Dates: start: 202210
  2. PULMICORT FLEXHALER [Concomitant]
     Active Substance: BUDESONIDE
     Indication: Asthma
     Route: 055
     Dates: end: 202210

REACTIONS (5)
  - Fatigue [Not Recovered/Not Resolved]
  - Flatulence [Not Recovered/Not Resolved]
  - Product dose omission issue [Not Recovered/Not Resolved]
  - Device use issue [Unknown]
  - Product packaging quantity issue [Unknown]

NARRATIVE: CASE EVENT DATE: 20221001
